FAERS Safety Report 19572503 (Version 1)
Quarter: 2021Q3

REPORT INFORMATION
  Report Type: Spontaneous
  Country: US (occurrence: US)
  Receive Date: 20210716
  Receipt Date: 20210716
  Transmission Date: 20211014
  Serious: Yes (Hospitalization)
  Sender: FDA-Public Use
  Company Number: US-CELGENEUS-USA-20210703034

PATIENT
  Age: 65 Year
  Sex: Male

DRUGS (4)
  1. REVLIMID [Suspect]
     Active Substance: LENALIDOMIDE
     Dosage: 10MG
     Route: 048
     Dates: start: 202011
  2. REVLIMID [Suspect]
     Active Substance: LENALIDOMIDE
     Indication: PLASMA CELL MYELOMA
     Dosage: 25MG
     Route: 048
     Dates: start: 201912
  3. REVLIMID [Suspect]
     Active Substance: LENALIDOMIDE
     Dosage: 5MG
     Route: 048
     Dates: start: 202105
  4. REVLIMID [Suspect]
     Active Substance: LENALIDOMIDE
     Dosage: 15MG
     Route: 048
     Dates: start: 202106

REACTIONS (4)
  - Palpitations [Unknown]
  - Hyperhidrosis [Unknown]
  - Chest pain [Unknown]
  - Hypotension [Unknown]

NARRATIVE: CASE EVENT DATE: 20210705
